FAERS Safety Report 9540010 (Version 4)
Quarter: 2013Q4

REPORT INFORMATION
  Report Type: Report from Study
  Country: BE (occurrence: BE)
  Receive Date: 20130920
  Receipt Date: 20131015
  Transmission Date: 20140711
  Serious: Yes (Hospitalization)
  Sender: FDA-Public Use
  Company Number: BE-JNJFOC-20130802917

PATIENT
  Age: 81 Year
  Sex: Male
  Weight: 73 kg

DRUGS (4)
  1. XARELTO [Suspect]
     Indication: CEREBROVASCULAR ACCIDENT PROPHYLAXIS
     Route: 048
     Dates: start: 20130710, end: 20130728
  2. ASAFLOW [Concomitant]
     Route: 065
  3. CLEXANE [Concomitant]
     Route: 065
     Dates: start: 20130731, end: 20130920
  4. MARCOUMAR [Concomitant]
     Route: 065
     Dates: start: 20130918

REACTIONS (6)
  - Anaemia [Recovered/Resolved]
  - Aortic valve stenosis [Recovered/Resolved]
  - Deformity thorax [Unknown]
  - Syncope [Recovered/Resolved]
  - Angina pectoris [Recovered/Resolved]
  - Vertigo [Recovered/Resolved]
